FAERS Safety Report 5113465-7 (Version None)
Quarter: 2006Q3

REPORT INFORMATION
  Report Type: 
  Country: None (occurrence: None)
  Receive Date: 20060920
  Receipt Date: 20060908
  Transmission Date: 20061208
  Serious: Yes (Life-Threatening, Hospitalization)
  Sender: FDA-Public Use
  Company Number: HQWYE338915MAR06

PATIENT
  Age: 59 Year
  Sex: Male

DRUGS (16)
  1. MYLOTARG [Suspect]
     Indication: ACUTE MYELOID LEUKAEMIA RECURRENT
     Dosage: 9 MG/M^2 1X PER 1 DAY
     Route: 041
     Dates: start: 20060113, end: 20060113
  2. ENOCITABINE (ENOCITABINE, ) [Concomitant]
     Indication: ACUTE MYELOID LEUKAEMIA RECURRENT
     Route: 042
     Dates: start: 20060127, end: 20060202
  3. ETOPOSIDE [Suspect]
     Indication: ACUTE MYELOID LEUKAEMIA RECURRENT
     Route: 042
     Dates: start: 20060127, end: 20060202
  4. NOVANTRONE [Suspect]
     Indication: ACUTE MYELOID LEUKAEMIA RECURRENT
     Route: 042
     Dates: start: 20060127, end: 20060202
  5. LEVOFLOXACIN [Concomitant]
  6. ITRACONAZOLE [Concomitant]
  7. ALLOPURINOL [Concomitant]
  8. FAMOTIDINE [Concomitant]
  9. SUCRALFATE [Concomitant]
  10. BIOFERMIN R (STREPTOCOCCUS FAECALIS) [Concomitant]
  11. URSO 250 [Concomitant]
  12. SODIUM BICARBONATE [Concomitant]
  13. NASEA (RAMOSETRON HYDROCHLORIDE) [Concomitant]
  14. HEPARIN SODIUM [Concomitant]
  15. LASIX [Concomitant]
  16. METOCLOPRAMIDE [Concomitant]

REACTIONS (6)
  - ANAEMIA [None]
  - CENTRAL LINE INFECTION [None]
  - FIBRIN DEGRADATION PRODUCTS INCREASED [None]
  - SEPSIS [None]
  - VENOOCCLUSIVE LIVER DISEASE [None]
  - WHITE BLOOD CELL COUNT DECREASED [None]
